FAERS Safety Report 7009367-1 (Version None)
Quarter: 2010Q3

REPORT INFORMATION
  Report Type: 
  Country: None (occurrence: None)
  Receive Date: 20100921
  Receipt Date: 20100908
  Transmission Date: 20110219
  Serious: Yes (Other)
  Sender: FDA-Public Use
  Company Number: 2010AT000018

PATIENT
  Age: 62 Year
  Sex: Male

DRUGS (1)
  1. EDEX (ALPROSTADIL) (20 UG) [Suspect]
     Indication: ERECTILE DYSFUNCTION
     Dosage: 20 UG;ICAN
     Dates: start: 20060101

REACTIONS (3)
  - DRUG INEFFECTIVE [None]
  - OVERDOSE [None]
  - PRIAPISM [None]
